FAERS Safety Report 16257969 (Version 2)
Quarter: 2019Q2

REPORT INFORMATION
  Report Type: Report from Study
  Country: DE (occurrence: DE)
  Receive Date: 20190430
  Receipt Date: 20190508
  Transmission Date: 20190711
  Serious: Yes (Hospitalization)
  Sender: FDA-Public Use
  Company Number: DE-TAKEDA-2019TUS026694

PATIENT

DRUGS (2)
  1. CALCIUM SANDOZ D [Concomitant]
     Dosage: UNK
  2. VEDOLIZUMAB [Suspect]
     Active Substance: VEDOLIZUMAB
     Indication: INFLAMMATORY BOWEL DISEASE
     Dosage: UNK
     Route: 042
     Dates: start: 20170202

REACTIONS (1)
  - Cholangitis sclerosing [Recovered/Resolved]

NARRATIVE: CASE EVENT DATE: 20190212
